FAERS Safety Report 4663743-0 (Version None)
Quarter: 2005Q2

REPORT INFORMATION
  Report Type: 
  Country: None (occurrence: None)
  Receive Date: 20050516
  Receipt Date: 20050406
  Transmission Date: 20051028
  Serious: Yes (Hospitalization)
  Sender: FDA-Public Use
  Company Number: 2005BI007367

PATIENT
  Sex: Female

DRUGS (6)
  1. AVONEX [Suspect]
     Indication: MULTIPLE SCLEROSIS
     Dosage: IM
     Route: 030
     Dates: start: 20010801
  2. NATALIZUMAB [Suspect]
     Indication: MULTIPLE SCLEROSIS
     Dosage: IV
     Route: 042
     Dates: start: 20050201, end: 20050201
  3. CYTOXAN [Concomitant]
  4. NOVANTRONE [Concomitant]
  5. CLADRIBINE [Concomitant]
  6. CELLCEPT [Concomitant]

REACTIONS (17)
  - ATROPHY [None]
  - BLINDNESS CORTICAL [None]
  - CONDITION AGGRAVATED [None]
  - CONFUSIONAL STATE [None]
  - DISORIENTATION [None]
  - EPSTEIN-BARR VIRUS SEROLOGY POSITIVE [None]
  - FAECAL INCONTINENCE [None]
  - LIVER FUNCTION TEST ABNORMAL [None]
  - MULTIPLE SCLEROSIS RELAPSE [None]
  - MYELITIS TRANSVERSE [None]
  - NEUROGENIC BLADDER [None]
  - OPTIC ATROPHY [None]
  - OPTIC NEURITIS [None]
  - PROGRESSIVE MULTIFOCAL LEUKOENCEPHALOPATHY [None]
  - SPINAL CORD DISORDER [None]
  - URINARY INCONTINENCE [None]
  - URINARY TRACT INFECTION [None]
